FAERS Safety Report 14466357 (Version 1)
Quarter: 2018Q1

REPORT INFORMATION
  Report Type: Spontaneous
  Country: US (occurrence: US)
  Receive Date: 20180131
  Receipt Date: 20180131
  Transmission Date: 20180509
  Serious: Yes (Other)
  Sender: FDA-Public Use
  Company Number: US-PROCTER_AND_GAMBLE-GS18008589

PATIENT
  Age: 38 Year
  Sex: Male

DRUGS (1)
  1. CREST [Suspect]
     Active Substance: SODIUM FLUORIDE
     Dosage: UNK
     Route: 002

REACTIONS (2)
  - Drug-disease interaction [Recovered/Resolved]
  - Seizure [Recovered/Resolved]
